FAERS Safety Report 9370170 (Version 1)
Quarter: 2013Q2

REPORT INFORMATION
  Report Type: Spontaneous
  Country: US (occurrence: None)
  Receive Date: 20130624
  Receipt Date: 20130624
  Transmission Date: 20140414
  Serious: Yes (Hospitalization)
  Sender: FDA-Public Use
  Company Number: THQ2013A04569

PATIENT
  Age: 84 Year
  Sex: Female

DRUGS (3)
  1. LANSOPRAZOLE (LANSOPRAZOLE) [Suspect]
  2. ADVIL (IBUPROFEN) [Suspect]
     Indication: SPONDYLITIS
  3. ALEVE [Suspect]
     Indication: SPONDYLITIS

REACTIONS (13)
  - Rash [None]
  - Food poisoning [None]
  - Dehydration [None]
  - Pneumonia [None]
  - Staphylococcal infection [None]
  - Nerve compression [None]
  - Chronic obstructive pulmonary disease [None]
  - Choking [None]
  - Foot deformity [None]
  - Pneumothorax [None]
  - Drug ineffective [None]
  - Arthritis [None]
  - Malaise [None]
